FAERS Safety Report 25940221 (Version 1)
Quarter: 2025Q4

REPORT INFORMATION
  Report Type: Report from Study
  Country: US (occurrence: US)
  Receive Date: 20251020
  Receipt Date: 20251020
  Transmission Date: 20260118
  Serious: Yes (Other)
  Sender: BAYER HEALTHCARE PHARMACEUTICALS INC.
  Company Number: US-BAYER-2025A087114

PATIENT
  Age: 36 Year
  Sex: Male

DRUGS (2)
  1. ADEMPAS [Suspect]
     Active Substance: RIOCIGUAT
     Indication: Pulmonary arterial hypertension
     Dosage: 0.5 MG, TID
     Route: 048
     Dates: start: 202506
  2. ADEMPAS [Suspect]
     Active Substance: RIOCIGUAT
     Indication: Pulmonary hypertension
     Dosage: 1.5 MG, TID
     Route: 048
     Dates: start: 202508

REACTIONS (13)
  - Blood pressure abnormal [None]
  - Headache [Recovered/Resolved]
  - Chest discomfort [Recovered/Resolved]
  - Hypotension [None]
  - Fatigue [None]
  - Headache [Not Recovered/Not Resolved]
  - Palpitations [None]
  - Chest discomfort [None]
  - Gastrooesophageal reflux disease [None]
  - Dyspepsia [None]
  - Product dose omission issue [None]
  - Hypotension [None]
  - Dizziness [None]

NARRATIVE: CASE EVENT DATE: 20250101
